FAERS Safety Report 23774271 (Version 2)
Quarter: 2024Q2

REPORT INFORMATION
  Report Type: Spontaneous
  Country: US (occurrence: US)
  Receive Date: 20240423
  Receipt Date: 20240429
  Transmission Date: 20240716
  Serious: No
  Sender: FDA-Public Use
  Company Number: US-MYLANLABS-2024M1033582

PATIENT
  Age: 43 Year
  Sex: Male
  Weight: 70.6 kg

DRUGS (1)
  1. OXALIPLATIN [Suspect]
     Active Substance: OXALIPLATIN
     Indication: Product used for unknown indication
     Dosage: 165 MILLIGRAM
     Route: 065
     Dates: start: 20240410

REACTIONS (6)
  - Infusion related reaction [Unknown]
  - Feeling hot [Unknown]
  - Blood pressure systolic decreased [Unknown]
  - Chills [Unknown]
  - Flushing [Unknown]
  - Dizziness [Unknown]

NARRATIVE: CASE EVENT DATE: 20240401
